FAERS Safety Report 5389960-2 (Version None)
Quarter: 2007Q3

REPORT INFORMATION
  Report Type: 
  Country: None (occurrence: None)
  Receive Date: 20070718
  Receipt Date: 20070119
  Transmission Date: 20080115
  Serious: No
  Sender: FDA-Public Use
  Company Number: A0636302A

PATIENT
  Age: 69 Year
  Sex: Female

DRUGS (4)
  1. HYCAMTIN [Suspect]
     Route: 042
     Dates: start: 20070105
  2. DEXAMETHASONE 0.5MG TAB [Concomitant]
  3. PALONOSETRON [Concomitant]
  4. INHALER [Concomitant]

REACTIONS (1)
  - DYSPNOEA [None]
